FAERS Safety Report 25556720 (Version 1)
Quarter: 2025Q3

REPORT INFORMATION
  Report Type: Report from Study
  Country: US (occurrence: US)
  Receive Date: 20250715
  Receipt Date: 20250715
  Transmission Date: 20251020
  Serious: Yes (Other)
  Sender: ALEXION PHARMACEUTICALS
  Company Number: US-AstraZeneca-CH-00879762A

PATIENT
  Age: 81 Year
  Sex: Female
  Weight: 68.027 kg

DRUGS (6)
  1. SOLIRIS [Suspect]
     Active Substance: ECULIZUMAB
     Indication: Myasthenia gravis
     Route: 065
  2. LEXAPRO [Suspect]
     Active Substance: ESCITALOPRAM OXALATE
     Route: 065
  3. SERTRALINE [Concomitant]
     Active Substance: SERTRALINE HYDROCHLORIDE
     Route: 065
  4. MESTINON [Concomitant]
     Active Substance: PYRIDOSTIGMINE BROMIDE
     Indication: Myasthenia gravis
     Dosage: 60 MILLIGRAM, TID
     Route: 065
  5. SEROQUEL [Concomitant]
     Active Substance: QUETIAPINE FUMARATE
     Dosage: 150 MILLIGRAM, QHS
     Route: 065
  6. TRAZODONE [Concomitant]
     Active Substance: TRAZODONE HYDROCHLORIDE
     Dosage: 50 MILLIGRAM, QHS
     Route: 065

REACTIONS (18)
  - Cerebral infarction [Unknown]
  - Metabolic encephalopathy [Unknown]
  - Delirium [Unknown]
  - Myasthenia gravis [Unknown]
  - Nephrolithiasis [Unknown]
  - Cognitive disorder [Unknown]
  - Fall [Unknown]
  - Gait disturbance [Recovering/Resolving]
  - Stress [Unknown]
  - Depression [Unknown]
  - Irritability [Unknown]
  - Plantar fasciitis [Unknown]
  - Urinary tract infection [Recovering/Resolving]
  - Headache [Unknown]
  - Mental fatigue [Unknown]
  - Agitation [Unknown]
  - Personality change [Unknown]
  - Confusional state [Unknown]

NARRATIVE: CASE EVENT DATE: 20241001
